FAERS Safety Report 23444453 (Version 2)
Quarter: 2024Q1

REPORT INFORMATION
  Report Type: Spontaneous
  Country: FR (occurrence: FR)
  Receive Date: 20240125
  Receipt Date: 20240229
  Transmission Date: 20240410
  Serious: Yes (Death, Hospitalization, Other)
  Sender: FDA-Public Use
  Company Number: FR-GILEAD-2023-0652755

PATIENT
  Age: 51 Year
  Sex: Male
  Weight: 76 kg

DRUGS (8)
  1. LENACAPAVIR [Suspect]
     Active Substance: LENACAPAVIR
     Indication: HIV infection
     Dosage: 927 MG/6MONTHS
     Route: 058
     Dates: start: 20230216, end: 20230905
  2. RUKOBIA [Concomitant]
     Active Substance: FOSTEMSAVIR TROMETHAMINE
     Indication: HIV infection
     Dosage: 1200 MG, QD
     Route: 048
     Dates: start: 20210525, end: 20231003
  3. DOVATO [Concomitant]
     Active Substance: DOLUTEGRAVIR SODIUM\LAMIVUDINE
     Indication: HIV infection
     Dosage: 50/300 MG/D
     Route: 048
     Dates: start: 20210823, end: 20231003
  4. TIVICAY [Concomitant]
     Active Substance: DOLUTEGRAVIR SODIUM
     Indication: HIV infection
     Dosage: 50 MG, QD
     Route: 048
     Dates: start: 20210525, end: 20231003
  5. BISOPROLOL [Concomitant]
     Active Substance: BISOPROLOL\BISOPROLOL FUMARATE
     Indication: Cardiac disorder
     Dosage: 10 MG, QD
     Route: 048
     Dates: start: 20150615, end: 20231003
  6. PERINDOPRIL ARGININE [Concomitant]
     Active Substance: PERINDOPRIL ARGININE
     Indication: Cardiac disorder
     Dosage: 5 MG, QD
     Route: 048
     Dates: start: 20150615, end: 20231003
  7. EZETIMIBE\ROSUVASTATIN [Concomitant]
     Active Substance: EZETIMIBE\ROSUVASTATIN
     Indication: Cardiac disorder
     Dosage: 20/10  MG/D
     Route: 048
     Dates: start: 20150615, end: 20231003
  8. ASPIRIN DL-LYSINE [Concomitant]
     Active Substance: ASPIRIN DL-LYSINE
     Indication: Cardiac disorder
     Dosage: 100 MG, QD
     Route: 048
     Dates: start: 20210615, end: 20231003

REACTIONS (1)
  - Pancreatic carcinoma metastatic [Fatal]
